FAERS Safety Report 6929250-7 (Version None)
Quarter: 2010Q3

REPORT INFORMATION
  Report Type: 
  Country: None (occurrence: None)
  Receive Date: 20100812
  Receipt Date: 20100802
  Transmission Date: 20110219
  Serious: Yes (Life-Threatening, Hospitalization, Other)
  Sender: FDA-Public Use
  Company Number: GER/GER/10/0013764

PATIENT
  Age: 89 Year
  Sex: Male
  Weight: 92 kg

DRUGS (4)
  1. SIMVASTATIN [Suspect]
     Indication: PRODUCT USED FOR UNKNOWN INDICATION
     Dosage: 40 MG, 1 IN 1 D, ORAL
     Dates: start: 20080101, end: 20100401
  2. AMIODARONE HYDROCHLORIDE [Suspect]
     Indication: PRODUCT USED FOR UNKNOWN INDICATION
     Dosage: 300 MG, 1 IN 1 D, ORAL, 200 MG, 3 IN 1 D, ORAL, 300 MG, 1 IN 1 D, ORAL
     Route: 048
     Dates: start: 20000101, end: 20100305
  3. AMIODARONE HYDROCHLORIDE [Suspect]
     Indication: PRODUCT USED FOR UNKNOWN INDICATION
     Dosage: 300 MG, 1 IN 1 D, ORAL, 200 MG, 3 IN 1 D, ORAL, 300 MG, 1 IN 1 D, ORAL
     Route: 048
     Dates: start: 20100306, end: 20100313
  4. AMIODARONE HYDROCHLORIDE [Suspect]
     Indication: PRODUCT USED FOR UNKNOWN INDICATION
     Dosage: 300 MG, 1 IN 1 D, ORAL, 200 MG, 3 IN 1 D, ORAL, 300 MG, 1 IN 1 D, ORAL
     Route: 048
     Dates: start: 20100314

REACTIONS (5)
  - ABASIA [None]
  - DIALYSIS [None]
  - HYPOAESTHESIA [None]
  - RENAL FAILURE [None]
  - RHABDOMYOLYSIS [None]
